FAERS Safety Report 7518188 (Version 2)
Quarter: 2013Q2

REPORT INFORMATION
  Report Type: Report from Study
  Country: DE (occurrence: DE)
  Receive Date: 20100802
  Receipt Date: 20130613
  Transmission Date: 20140414
  Serious: Yes (Other)
  Sender: FDA-Public Use
  Company Number: DE-JNJFOC-20100707516

PATIENT
  Age: 3 Decade
  Sex: Male
  Weight: 115 kg

DRUGS (7)
  1. REMICADE [Suspect]
     Indication: CROHN^S DISEASE
     Route: 042
     Dates: start: 20080425
  2. REMICADE [Suspect]
     Indication: CROHN^S DISEASE
     Route: 042
     Dates: start: 20080328
  3. REMICADE [Suspect]
     Indication: CROHN^S DISEASE
     Route: 042
     Dates: start: 20080227
  4. REMICADE [Suspect]
     Indication: CROHN^S DISEASE
     Route: 042
     Dates: start: 2009
  5. ANTIDEPRESSANTS [Concomitant]
  6. BUDESONIDE [Concomitant]
     Indication: CROHN^S DISEASE
     Dosage: FREQUENCY 1-0-0
  7. AZATHIOPRINE [Concomitant]
     Indication: CROHN^S DISEASE
     Dosage: FREQUENCY 2-0-2

REACTIONS (2)
  - Haematoma infection [Recovering/Resolving]
  - Bursitis [Recovering/Resolving]
